FAERS Safety Report 19814801 (Version 2)
Quarter: 2021Q3

REPORT INFORMATION
  Report Type: Spontaneous
  Country: TN (occurrence: TN)
  Receive Date: 20210909
  Receipt Date: 20210927
  Transmission Date: 20211014
  Serious: Yes (Other)
  Sender: FDA-Public Use
  Company Number: TN-PFIZER INC-202101151091

PATIENT
  Age: 68 Year
  Sex: Male

DRUGS (5)
  1. GEMCITABINE HYDROCHLORIDE. [Suspect]
     Active Substance: GEMCITABINE HYDROCHLORIDE
     Indication: NASOPHARYNGEAL CANCER METASTATIC
     Dosage: 1 G/M2, ON DAYS 1 AND 8
     Route: 042
  2. DEXAMETHASONE. [Concomitant]
     Active Substance: DEXAMETHASONE
     Indication: PREMEDICATION
     Dosage: 8 MG
  3. CISPLATIN. [Concomitant]
     Active Substance: CISPLATIN
     Indication: NASOPHARYNGEAL CANCER METASTATIC
     Dosage: 80 MG/M2, ON DAY 1
     Route: 042
  4. PREDNISOLONE. [Concomitant]
     Active Substance: PREDNISOLONE
     Indication: LYMPHANGITIS
     Dosage: 40 MG, DAILY
  5. METFORMIN [Concomitant]
     Active Substance: METFORMIN HYDROCHLORIDE
     Indication: TYPE 2 DIABETES MELLITUS
     Dosage: UNK

REACTIONS (1)
  - Atrial fibrillation [Recovering/Resolving]
